FAERS Safety Report 4340870-9 (Version None)
Quarter: 2004Q2

REPORT INFORMATION
  Report Type: 
  Country: None (occurrence: None)
  Receive Date: 20040414
  Receipt Date: 20040406
  Transmission Date: 20050107
  Serious: Yes (Other)
  Sender: FDA-Public Use
  Company Number: THQ2004A00334

PATIENT
  Age: 29 Year
  Sex: Male

DRUGS (2)
  1. HELIMET (LANSOPRAZOLE, CLARITHROMYCIN, METRONIDAZOLE) [Suspect]
     Indication: HELICOBACTER INFECTION
     Dosage: UNKNOWN (2 IN 1 D) PER ORAL
     Route: 048
     Dates: start: 20040213, end: 20040215
  2. RISPERIDONE [Suspect]
     Dosage: 500 MCG (500 MCG, 1 IN 1 D)
     Dates: start: 20031204

REACTIONS (3)
  - CONDITION AGGRAVATED [None]
  - DRUG INTERACTION [None]
  - PSYCHOTIC DISORDER [None]
